FAERS Safety Report 17625481 (Version 1)
Quarter: 2020Q2

REPORT INFORMATION
  Report Type: Spontaneous
  Country: FI (occurrence: FI)
  Receive Date: 20200403
  Receipt Date: 20200403
  Transmission Date: 20200713
  Serious: Yes (Hospitalization)
  Sender: FDA-Public Use
  Company Number: FI-ACCORD-178092

PATIENT
  Age: 59 Year
  Sex: Male

DRUGS (3)
  1. DEXAMETASON ABCUR [Concomitant]
     Indication: GLIOBLASTOMA
     Dosage: 3 MG, DAILY
     Route: 048
     Dates: start: 20191216
  2. TEMOZOLOMIDE ACCORD [Suspect]
     Active Substance: TEMOZOLOMIDE
     Indication: GLIOBLASTOMA
     Dosage: 140 MG, DAILY
     Route: 048
     Dates: start: 20191216, end: 20191223
  3. SOMAC [Concomitant]
     Active Substance: PANTOPRAZOLE SODIUM
     Dosage: 40 MG,DAILY
     Route: 048
     Dates: start: 20191216

REACTIONS (1)
  - Hepatitis B reactivation [Recovered/Resolved with Sequelae]

NARRATIVE: CASE EVENT DATE: 20200309
